FAERS Safety Report 25989659 (Version 1)
Quarter: 2025Q4

REPORT INFORMATION
  Report Type: Spontaneous
  Country: SA (occurrence: SA)
  Receive Date: 20251103
  Receipt Date: 20251103
  Transmission Date: 20260118
  Serious: Yes (Other)
  Sender: HIKMA
  Company Number: SA-HIKMA PHARMACEUTICALS-SA-H14001-25-11626

PATIENT
  Age: 50 Year
  Sex: Female

DRUGS (5)
  1. IPRATROPIUM [Suspect]
     Active Substance: IPRATROPIUM
     Indication: Asthma
     Dosage: UNK, BACK-TO-BACK NEBULIZATIONS WITH SALBUTAMOL AND IPRATROPIUM
     Route: 065
  2. METHYLPREDNISOLONE [Suspect]
     Active Substance: METHYLPREDNISOLONE
     Indication: Asthma
     Dosage: 125 MILLIGRAM
     Route: 042
  3. ALBUTEROL [Suspect]
     Active Substance: ALBUTEROL
     Indication: Asthma
     Dosage: UNK, BACK-TO-BACK NEBULIZATIONS WITH SALBUTAMOL AND IPRATROPIUM
     Route: 065
  4. MAGNESIUM SULFATE [Concomitant]
     Active Substance: MAGNESIUM SULFATE
     Indication: Asthma
     Dosage: 2 G OVER 30MINS
     Route: 042
  5. SODIUM CHLORIDE [Concomitant]
     Active Substance: SODIUM CHLORIDE
     Indication: Product used for unknown indication
     Dosage: 500 MILLILITER INITIAL BOLUS
     Route: 040

REACTIONS (1)
  - Diabetic ketoacidosis [Unknown]
